FAERS Safety Report 8717694 (Version 2)
Quarter: 2012Q4

REPORT INFORMATION
  Report Type: 
  Country: GB (occurrence: GB)
  Receive Date: 20120810
  Receipt Date: 20120915
  Transmission Date: 20130627
  Serious: Yes (Other)
  Sender: FDA-Public Use
  Company Number: GB-009507513-1207GBR006800

PATIENT

DRUGS (1)
  1. IMPLANON [Suspect]
     Dosage: UNK
     Dates: start: 2007

REACTIONS (5)
  - Infertility female [Unknown]
  - Keloid scar [Unknown]
  - Menstruation irregular [Not Recovered/Not Resolved]
  - Incorrect drug administration duration [Unknown]
  - Device difficult to use [None]
